FAERS Safety Report 9893653 (Version 2)
Quarter: 2014Q1

REPORT INFORMATION
  Report Type: Spontaneous
  Country: US (occurrence: US)
  Receive Date: 20140213
  Receipt Date: 20140326
  Transmission Date: 20141002
  Serious: No
  Sender: FDA-Public Use
  Company Number: US-009507513-1402USA002895

PATIENT
  Age: 60 Year
  Sex: Female
  Weight: 79.37 kg

DRUGS (5)
  1. ZEGERID OTC CAPSULES [Suspect]
     Indication: GASTROOESOPHAGEAL REFLUX DISEASE
     Dosage: UNK UNK, UNKNOWN
     Route: 048
  2. ZEGERID OTC CAPSULES [Suspect]
     Dosage: 20 MG, QPM
     Route: 048
     Dates: start: 201301, end: 20140125
  3. ZEGERID OTC CAPSULES [Suspect]
     Dosage: UNK UNK, UNKNOWN
     Route: 048
     Dates: end: 201402
  4. LIMBREL (BAICALIN (+) CIANIDANOL (+) ZINC GLYCINATE, CITRATED) [Concomitant]
     Indication: OSTEOARTHRITIS
     Dosage: UNK, UNKNOWN
  5. PANTOPRAZOLE [Concomitant]
     Indication: GASTROOESOPHAGEAL REFLUX DISEASE
     Dosage: UNK, UNKNOWN

REACTIONS (4)
  - Palpitations [Recovered/Resolved]
  - Dizziness [Recovered/Resolved]
  - Incorrect drug administration duration [Unknown]
  - Off label use [Unknown]
